FAERS Safety Report 20103274 (Version 1)
Quarter: 2021Q4

REPORT INFORMATION
  Report Type: Report from Study
  Country: US (occurrence: US)
  Receive Date: 20211123
  Receipt Date: 20211123
  Transmission Date: 20220303
  Serious: Yes (Other)
  Sender: FDA-Public Use
  Company Number: US-JAZZ-2014-US-012440

PATIENT
  Age: 23 Year
  Sex: Female

DRUGS (15)
  1. XYREM [Suspect]
     Active Substance: SODIUM OXYBATE
     Indication: Narcolepsy
     Dosage: 2.25 GRAM, BID
     Route: 048
     Dates: start: 201110, end: 2011
  2. XYREM [Suspect]
     Active Substance: SODIUM OXYBATE
     Indication: Cataplexy
     Dosage: DOSE ADJUTMENT
     Route: 048
  3. XYREM [Suspect]
     Active Substance: SODIUM OXYBATE
     Dosage: 3 GRAM, BID
     Route: 048
     Dates: start: 2014
  4. FERROUS SULFATE [Concomitant]
     Active Substance: FERROUS SULFATE
  5. LINZESS [Concomitant]
     Active Substance: LINACLOTIDE
  6. VITAMIN C [Concomitant]
     Active Substance: ASCORBIC ACID
  7. OMEGA 3 6 9 COMPLEX [Concomitant]
  8. NAPROXEN [Concomitant]
     Active Substance: NAPROXEN
  9. HYDROXYZINE PAMOATE [Concomitant]
     Active Substance: HYDROXYZINE PAMOATE
  10. PREDNISONE [Concomitant]
     Active Substance: PREDNISONE
  11. RIZATRIPTAN [Concomitant]
     Active Substance: RIZATRIPTAN
  12. SUNOSI [Concomitant]
     Active Substance: SOLRIAMFETOL
  13. EMGALITY [Concomitant]
     Active Substance: GALCANEZUMAB-GNLM
  14. PREDNISOLONE [Concomitant]
     Active Substance: PREDNISOLONE
  15. VALACYCLOVIR HYDROCHLORIDE [Concomitant]
     Active Substance: VALACYCLOVIR HYDROCHLORIDE

REACTIONS (2)
  - Connective tissue disorder [Not Recovered/Not Resolved]
  - Arthralgia [Unknown]

NARRATIVE: CASE EVENT DATE: 20140901
